FAERS Safety Report 7827995-8 (Version None)
Quarter: 2011Q4

REPORT INFORMATION
  Report Type: 
  Country: None (occurrence: None)
  Receive Date: 20111020
  Receipt Date: 20111012
  Transmission Date: 20120403
  Serious: Yes (Death, Hospitalization)
  Sender: FDA-Public Use
  Company Number: US-GLAXOSMITHKLINE-A0845028A

PATIENT
  Age: 86 Year
  Sex: Female
  Weight: 54.1 kg

DRUGS (9)
  1. HYDROCHLOROTHIAZIDE [Concomitant]
  2. JANUVIA [Concomitant]
  3. ZETIA [Concomitant]
  4. AVANDIA [Suspect]
     Indication: DIABETES MELLITUS
     Dosage: 2MG TWICE PER DAY
     Route: 048
     Dates: start: 20040101, end: 20060810
  5. ATENOLOL [Concomitant]
  6. AVANDARYL [Suspect]
     Indication: DIABETES MELLITUS
     Dosage: 1TAB PER DAY
     Route: 048
     Dates: start: 20060810, end: 20070722
  7. NEXIUM [Concomitant]
  8. ZOCOR [Concomitant]
  9. AMARYL [Concomitant]

REACTIONS (9)
  - RENAL FAILURE ACUTE [None]
  - PULMONARY HYPERTENSION [None]
  - RESPIRATORY FAILURE [None]
  - ATRIAL FLUTTER [None]
  - TRANSIENT ISCHAEMIC ATTACK [None]
  - PULMONARY OEDEMA [None]
  - COLITIS ISCHAEMIC [None]
  - CEREBROVASCULAR ACCIDENT [None]
  - MYOCARDIAL INFARCTION [None]
